FAERS Safety Report 16748838 (Version 1)
Quarter: 2019Q3

REPORT INFORMATION
  Report Type: Spontaneous
  Country: DE (occurrence: DE)
  Receive Date: 20190828
  Receipt Date: 20190828
  Transmission Date: 20191005
  Serious: Yes (Other)
  Sender: FDA-Public Use
  Company Number: DE-ASTRAZENECA-2019SF19490

PATIENT
  Age: 70 Year
  Sex: Female

DRUGS (1)
  1. DUORESP SPIROMAX [Suspect]
     Active Substance: BUDESONIDE\FORMOTEROL
     Indication: TRAUMATIC LUNG INJURY
     Dosage: 320/9 MICROGRAM, DAILY
     Route: 055
     Dates: start: 201906

REACTIONS (2)
  - Haemorrhage [Not Recovered/Not Resolved]
  - Device issue [Unknown]

NARRATIVE: CASE EVENT DATE: 2019
